FAERS Safety Report 24760536 (Version 1)
Quarter: 2024Q4

REPORT INFORMATION
  Report Type: Spontaneous
  Country: GB (occurrence: GB)
  Receive Date: 20241220
  Receipt Date: 20241220
  Transmission Date: 20250115
  Serious: Yes (Hospitalization, Other)
  Sender: MERCK
  Company Number: GB-009507513-2412GBR007444

PATIENT
  Age: 60 Year
  Sex: Male
  Weight: 78.05 kg

DRUGS (8)
  1. PEMBROLIZUMAB [Suspect]
     Active Substance: PEMBROLIZUMAB
     Indication: Squamous cell carcinoma of head and neck
     Dosage: 200 MG
     Route: 042
     Dates: start: 20240912, end: 20240912
  2. PEMBROLIZUMAB [Suspect]
     Active Substance: PEMBROLIZUMAB
     Dosage: 200 MG
     Route: 042
     Dates: start: 20240912, end: 20240912
  3. CARBOCYSTEINE [Concomitant]
     Active Substance: CARBOCYSTEINE
     Indication: Stomatitis
     Dosage: 5 MILLILITER, TDS (THREE TIMES A DAY)
     Route: 048
     Dates: start: 202306, end: 20240911
  4. CARBOCYSTEINE [Concomitant]
     Active Substance: CARBOCYSTEINE
     Dosage: 10 MILLILITER, TDS (THREE TIMES A DAY)
     Route: 048
     Dates: start: 20240911
  5. ALBUTEROL [Concomitant]
     Active Substance: ALBUTEROL
     Indication: Dyspnoea
     Dosage: 2 PUFFS, PRN, FORMULATION: INHALOR
     Dates: start: 202006
  6. ACETAMINOPHEN [Concomitant]
     Active Substance: ACETAMINOPHEN
     Indication: Analgesic therapy
     Dosage: 1000 MILLIGRAM, PRN
     Route: 048
     Dates: start: 202306
  7. BECLOMETHASONE DIPROPIONATE [Concomitant]
     Active Substance: BECLOMETHASONE DIPROPIONATE
     Indication: Dyspnoea
     Dosage: 200 MICROGRAM, BD (TWICE DAILY)
     Route: 055
     Dates: start: 20240911
  8. IBUPROFEN [Concomitant]
     Active Substance: IBUPROFEN
     Indication: Pain prophylaxis
     Dosage: 600 MILLIGRAM, PRN, 3/DAYS
     Dates: start: 20240905

REACTIONS (2)
  - Cytokine release syndrome [Recovered/Resolved]
  - Hypoxia [Recovered/Resolved with Sequelae]

NARRATIVE: CASE EVENT DATE: 20240912
